FAERS Safety Report 5039334-9 (Version None)
Quarter: 2006Q2

REPORT INFORMATION
  Report Type: 
  Country: None (occurrence: None)
  Receive Date: 20060629
  Receipt Date: 20060622
  Transmission Date: 20061013
  Serious: Yes (Other)
  Sender: FDA-Public Use
  Company Number: US-JNJFOC-20060605625

PATIENT
  Sex: Female
  Weight: 79.38 kg

DRUGS (5)
  1. FENTANYL TRANSDERMAL SYSTEM [Suspect]
     Indication: PAIN
     Route: 062
  2. CELEBREX [Concomitant]
     Indication: ARTHRITIS
     Route: 048
  3. PROVIGIL [Concomitant]
     Indication: FIBROMYALGIA
     Route: 048
  4. FLEXERIL [Concomitant]
     Indication: MUSCLE SPASMS
     Route: 048
  5. PAXIL [Concomitant]
     Indication: ANXIETY

REACTIONS (10)
  - ANOREXIA [None]
  - CEREBROVASCULAR ACCIDENT [None]
  - DYSPNOEA [None]
  - HALLUCINATION [None]
  - HEADACHE [None]
  - NAUSEA [None]
  - NIGHTMARE [None]
  - PAIN [None]
  - PAROSMIA [None]
  - VOMITING [None]
